FAERS Safety Report 7313595-5 (Version None)
Quarter: 2011Q1

REPORT INFORMATION
  Report Type: 
  Country: None (occurrence: None)
  Receive Date: 20110218
  Receipt Date: 20110218
  Transmission Date: 20110831
  Serious: No
  Sender: FDA-Public Use
  Company Number: None

PATIENT
  Age: 74 Year
  Sex: Male
  Weight: 95.2554 kg

DRUGS (1)
  1. LISINOPRIL [Suspect]
     Indication: HYPERTENSION
     Dosage: 10 MG 2X DAILY MOUTH
     Route: 048
     Dates: start: 20061004, end: 20100810

REACTIONS (2)
  - LIP SWELLING [None]
  - OEDEMA MOUTH [None]
